FAERS Safety Report 16241028 (Version 2)
Quarter: 2019Q4

REPORT INFORMATION
  Report Type: Report from Study
  Country: TW (occurrence: TW)
  Receive Date: 20190425
  Receipt Date: 20191108
  Transmission Date: 20200122
  Serious: Yes (Life-Threatening, Hospitalization)
  Sender: FDA-Public Use
  Company Number: PHHY2018TW069733

PATIENT
  Age: 70 Year
  Sex: Male
  Weight: 85.3 kg

DRUGS (78)
  1. LORAZEPAM. [Concomitant]
     Active Substance: LORAZEPAM
     Indication: PROPHYLAXIS
     Dosage: 2 OT, UNK
     Route: 042
     Dates: start: 20180417, end: 20180424
  2. LORAZEPAM. [Concomitant]
     Active Substance: LORAZEPAM
     Dosage: 50 OT, UNK
     Route: 042
  3. ALPRAZOLAM. [Concomitant]
     Active Substance: ALPRAZOLAM
     Dosage: 0.5 OT, UNK
     Route: 048
     Dates: start: 20180511, end: 20180517
  4. BETHANECHOL CHLORIDE. [Concomitant]
     Active Substance: BETHANECHOL CHLORIDE
     Indication: PROPHYLAXIS
     Dosage: 25 OT, UNK
     Route: 048
     Dates: start: 20180513, end: 20180517
  5. CALCIUM CHLORIDE ANHYDROUS [Concomitant]
     Active Substance: CALCIUM CHLORIDE ANHYDROUS
     Indication: PROPHYLAXIS
     Dosage: 10.8 OT
     Route: 048
     Dates: start: 20180506, end: 20180506
  6. VOTRIENT [Suspect]
     Active Substance: PAZOPANIB HYDROCHLORIDE
     Indication: RENAL CELL CARCINOMA
     Dosage: 800 MG, QD
     Route: 048
     Dates: start: 20180331, end: 20180409
  7. ULTRACET [Concomitant]
     Active Substance: ACETAMINOPHEN\TRAMADOL HYDROCHLORIDE
     Indication: PAIN
     Dosage: 1 OT, UNK
     Route: 048
     Dates: start: 20180321, end: 20180324
  8. MORPHINE [Concomitant]
     Active Substance: MORPHINE
     Indication: PAIN
     Dosage: 3 OT, UNK
     Route: 042
     Dates: start: 20180329, end: 20180329
  9. MAGNESIUM SULFATE. [Concomitant]
     Active Substance: MAGNESIUM SULFATE
     Indication: PROPHYLAXIS
     Dosage: 16 OT, UNK
     Route: 042
     Dates: start: 20180506, end: 20180506
  10. SERTACONAZOLE NITRATE [Concomitant]
     Active Substance: SERTACONAZOLE NITRATE
     Indication: PROPHYLAXIS
     Dosage: UNK
     Route: 061
     Dates: start: 20180419, end: 20180504
  11. TAMSULOSIN HCL [Concomitant]
     Active Substance: TAMSULOSIN HYDROCHLORIDE
     Indication: PRODUCT USED FOR UNKNOWN INDICATION
     Dosage: 0.2 OT, UNK
     Route: 048
     Dates: start: 20180503, end: 20180507
  12. FUROSEMIDE. [Concomitant]
     Active Substance: FUROSEMIDE
     Indication: ACUTE KIDNEY INJURY
     Dosage: 20 OT, UNK
     Route: 042
     Dates: start: 20180412, end: 20180414
  13. ACETAMINOPHEN. [Concomitant]
     Active Substance: ACETAMINOPHEN
     Dosage: 500 OT, UNK
     Route: 048
     Dates: start: 20180501, end: 20180523
  14. ACETYLCYSTEINE. [Concomitant]
     Active Substance: ACETYLCYSTEINE
     Indication: INCREASED VISCOSITY OF UPPER RESPIRATORY SECRETION
     Dosage: 1200 OT, UNK
     Route: 048
     Dates: start: 20180424, end: 20180426
  15. ALPRAZOLAM. [Concomitant]
     Active Substance: ALPRAZOLAM
     Dosage: 0.5 OT, UNK
     Route: 048
     Dates: start: 20180429
  16. AMLODIPINE BESYLATE. [Concomitant]
     Active Substance: AMLODIPINE BESYLATE
     Dosage: 150 OT, UNK
     Route: 042
     Dates: start: 20180506, end: 20180506
  17. AMLODIPINE BESYLATE. [Concomitant]
     Active Substance: AMLODIPINE BESYLATE
     Dosage: 5 OT, UNK
     Route: 042
     Dates: start: 20180509, end: 20180513
  18. BISOPROLOL FUMARATE. [Concomitant]
     Active Substance: BISOPROLOL FUMARATE
     Indication: HYPERTENSION
     Dosage: 1.25 OT, UNK
     Route: 048
     Dates: start: 20180506, end: 20180507
  19. AMIODARON [Concomitant]
     Active Substance: AMIODARONE
     Indication: PROPHYLAXIS
     Dosage: 150 OT
     Route: 048
     Dates: start: 20180418, end: 20180418
  20. AMIODARON [Concomitant]
     Active Substance: AMIODARONE
     Dosage: 200 OT
     Route: 048
     Dates: start: 20180519, end: 20180525
  21. ANTIBIOTICS-RESISTANT LACTIC ACID BACTERIAE [Concomitant]
     Active Substance: UNSPECIFIED INGREDIENT
     Indication: PROPHYLAXIS
     Dosage: 6 OT
     Route: 048
     Dates: start: 20180428, end: 20180429
  22. SPIRONOLACTONE. [Concomitant]
     Active Substance: SPIRONOLACTONE
     Indication: ACUTE KIDNEY INJURY
     Dosage: 25 UNK, UNK
     Route: 048
     Dates: start: 20180418, end: 20180420
  23. ZOPICLONE [Concomitant]
     Active Substance: ZOPICLONE
     Indication: PROPHYLAXIS
     Dosage: 1000 OT, UNK
     Route: 048
     Dates: start: 20180429, end: 20180505
  24. FUROSEMIDE. [Concomitant]
     Active Substance: FUROSEMIDE
     Dosage: 20 OT, UNK
     Route: 042
     Dates: start: 20180424, end: 20180424
  25. CLOPIDOGREL [Concomitant]
     Active Substance: CLOPIDOGREL BISULFATE
     Indication: CORONARY ARTERY DISEASE
     Dosage: 75 OT, UNK
     Route: 048
     Dates: start: 20180506, end: 20180517
  26. CALCIUM [Concomitant]
     Active Substance: CALCIUM
     Indication: PRODUCT USED FOR UNKNOWN INDICATION
     Dosage: 10.8 OT, UNK
     Route: 042
     Dates: start: 20180506, end: 20180506
  27. DUROGESIC [Concomitant]
     Active Substance: FENTANYL
     Indication: PAIN
     Dosage: 12.5 OT, UNK
     Route: 062
     Dates: start: 20180328, end: 20180415
  28. OXYCONTIN [Concomitant]
     Active Substance: OXYCODONE HYDROCHLORIDE
     Indication: PAIN
     Dosage: 10 OT, UNK
     Route: 048
     Dates: start: 20180329, end: 20180331
  29. NAPROXEN. [Concomitant]
     Active Substance: NAPROXEN
     Indication: PROPHYLAXIS
     Dosage: 250 OT, UNK
     Route: 048
     Dates: start: 20180428, end: 20180429
  30. FUROSEMIDE. [Concomitant]
     Active Substance: FUROSEMIDE
     Dosage: 20 OT, UNK
     Route: 042
     Dates: start: 20180420, end: 20180421
  31. AMLODIPINE BESYLATE. [Concomitant]
     Active Substance: AMLODIPINE BESYLATE
     Dosage: 150 OT, UNK
     Route: 042
     Dates: start: 20180418, end: 20180418
  32. BISACODYL. [Concomitant]
     Active Substance: BISACODYL
     Indication: PROPHYLAXIS
     Dosage: 20 OT, UNK
     Route: 054
     Dates: start: 20180330, end: 20180501
  33. BISOPROLOL FUMARATE. [Concomitant]
     Active Substance: BISOPROLOL FUMARATE
     Dosage: 2.5 OT, UNK
     Route: 048
     Dates: start: 20180508, end: 20180510
  34. AMIODARON [Concomitant]
     Active Substance: AMIODARONE
     Dosage: 150 OT
     Route: 048
     Dates: start: 20180506, end: 20180506
  35. AMIODARON [Concomitant]
     Active Substance: AMIODARONE
     Dosage: 200 OT
     Route: 048
     Dates: start: 20180517, end: 20180517
  36. CALCIUM CHLORIDE ANHYDROUS [Concomitant]
     Active Substance: CALCIUM CHLORIDE ANHYDROUS
     Dosage: 10.8 OT
     Route: 048
     Dates: start: 20180511, end: 20180512
  37. VOTRIENT [Suspect]
     Active Substance: PAZOPANIB HYDROCHLORIDE
     Dosage: 400 MG, QD
     Route: 065
     Dates: start: 20180417, end: 20180517
  38. MORPHINE SULFATE. [Concomitant]
     Active Substance: MORPHINE SULFATE
     Dosage: 5 OT, UNK
     Route: 048
     Dates: start: 20180329, end: 20180406
  39. MORPHINE SULFATE. [Concomitant]
     Active Substance: MORPHINE SULFATE
     Dosage: 5 OT, UNK
     Route: 048
     Dates: start: 20180515
  40. FLUMAZENIL. [Concomitant]
     Active Substance: FLUMAZENIL
     Indication: PRODUCT USED FOR UNKNOWN INDICATION
     Dosage: 0.5 OT, UNK
     Route: 042
     Dates: start: 20180320, end: 20180320
  41. NOREPINEPHRINE BITARTRATE. [Concomitant]
     Active Substance: NOREPINEPHRINE BITARTRATE
     Indication: PRODUCT USED FOR UNKNOWN INDICATION
     Dosage: 8 OT, UNK
     Route: 042
     Dates: start: 20180416, end: 20180416
  42. ZOPICLONE [Concomitant]
     Active Substance: ZOPICLONE
     Dosage: 7.5 OT, UNK
     Route: 042
     Dates: start: 20180517, end: 20180517
  43. FUROSEMIDE. [Concomitant]
     Active Substance: FUROSEMIDE
     Dosage: 40 OT, UNK
     Route: 048
     Dates: start: 20180415, end: 20180415
  44. FUROSEMIDE. [Concomitant]
     Active Substance: FUROSEMIDE
     Dosage: 20 OT, UNK
     Route: 042
     Dates: start: 20180417, end: 20180417
  45. FUROSEMIDE. [Concomitant]
     Active Substance: FUROSEMIDE
     Dosage: 40 OT, UNK
     Route: 048
     Dates: start: 20180418
  46. FUROSEMIDE. [Concomitant]
     Active Substance: FUROSEMIDE
     Dosage: 20 OT, UNK
     Route: 042
     Dates: start: 20180430, end: 20180430
  47. FUROSEMIDE. [Concomitant]
     Active Substance: FUROSEMIDE
     Dosage: 10 OT, UNK
     Route: 042
     Dates: start: 20180516, end: 20180516
  48. ACETAMINOPHEN. [Concomitant]
     Active Substance: ACETAMINOPHEN
     Indication: PROPHYLAXIS
     Dosage: 500 OT, UNK
     Route: 048
     Dates: start: 20180311
  49. BISOPROLOL FUMARATE. [Concomitant]
     Active Substance: BISOPROLOL FUMARATE
     Dosage: 5 OT, UNK
     Route: 048
     Dates: start: 20180511, end: 20180517
  50. AMIODARON [Concomitant]
     Active Substance: AMIODARONE
     Dosage: 900 OT
     Route: 048
     Dates: start: 20180418, end: 20180418
  51. MORPHINE HCL [Concomitant]
     Active Substance: MORPHINE HYDROCHLORIDE
     Indication: PAIN MANAGEMENT
     Dosage: 5 OT
     Route: 048
     Dates: start: 20180517, end: 20180523
  52. ADRENALINE [Concomitant]
     Active Substance: EPINEPHRINE
     Indication: DYSPNOEA
     Dosage: 1 OT, UNK
     Route: 055
     Dates: start: 20180322, end: 20180322
  53. MORPHINE SULFATE. [Concomitant]
     Active Substance: MORPHINE SULFATE
     Indication: PAIN
     Dosage: 3 OT, UNK
     Route: 048
     Dates: start: 20180324
  54. MORPHINE SULFATE. [Concomitant]
     Active Substance: MORPHINE SULFATE
     Dosage: 3 OT, UNK
     Route: 048
     Dates: start: 20180516, end: 20180517
  55. FUROSEMIDE. [Concomitant]
     Active Substance: FUROSEMIDE
     Dosage: 20 OT, UNK
     Route: 042
     Dates: start: 20180517, end: 20180517
  56. ALPRAZOLAM. [Concomitant]
     Active Substance: ALPRAZOLAM
     Indication: PROPHYLAXIS
     Dosage: 0.5 OT, UNK
     Route: 048
     Dates: start: 20180417, end: 20180428
  57. BISACODYL. [Concomitant]
     Active Substance: BISACODYL
     Indication: PROPHYLAXIS
     Dosage: 5 OT, UNK
     Route: 048
     Dates: start: 20180407, end: 20180407
  58. CHLORHEXIDINE GLUCONATE. [Concomitant]
     Active Substance: CHLORHEXIDINE GLUCONATE
     Indication: PROPHYLAXIS
     Route: 065
  59. CALCIUM [Concomitant]
     Active Substance: CALCIUM
     Dosage: 10.8 OT, UNK
     Route: 042
     Dates: start: 20180511, end: 20180512
  60. AMIODARON [Concomitant]
     Active Substance: AMIODARONE
     Dosage: 200 OT
     Route: 048
     Dates: start: 20180426, end: 20180508
  61. SENNAPUR [Concomitant]
     Indication: PROPHYLAXIS
     Dosage: 25 OT, UNK
     Route: 048
     Dates: start: 20180330, end: 20180330
  62. AMLODIPINE BESYLATE. [Concomitant]
     Active Substance: AMLODIPINE BESYLATE
     Indication: HYPERTENSION
     Dosage: 200 OT, UNK
     Route: 048
     Dates: start: 20180519, end: 20180525
  63. AMLODIPINE BESYLATE. [Concomitant]
     Active Substance: AMLODIPINE BESYLATE
     Dosage: 200 OT, UNK
     Route: 048
     Dates: start: 20180426, end: 20180508
  64. CALCITONIN, SALMON [Concomitant]
     Active Substance: CALCITONIN SALMON
     Indication: HYPERCALCAEMIA
     Dosage: 350 OT, UNK
     Route: 058
     Dates: start: 20180423, end: 20180425
  65. FEBUXOSTAT. [Concomitant]
     Active Substance: FEBUXOSTAT
     Indication: GOUT
     Dosage: 40 OT
     Route: 048
     Dates: start: 20180311, end: 20180517
  66. MAGNESIUM OXIDE. [Concomitant]
     Active Substance: MAGNESIUM OXIDE
     Indication: PROPHYLAXIS AGAINST GASTROINTESTINAL ULCER
     Dosage: 250 OT, UNK
     Route: 048
     Dates: start: 20180324, end: 20180326
  67. MORPHINE [Concomitant]
     Active Substance: MORPHINE
     Dosage: 10 OT, UNK
     Route: 042
     Dates: start: 20180517, end: 20180523
  68. LOPERAMIDE HCL [Concomitant]
     Active Substance: LOPERAMIDE HYDROCHLORIDE
     Indication: PROPHYLAXIS
     Dosage: 2 OT, UNK
     Route: 048
     Dates: start: 20180428, end: 20180503
  69. MIDAZOLAM HCL [Concomitant]
     Active Substance: MIDAZOLAM HYDROCHLORIDE
     Indication: PRODUCT USED FOR UNKNOWN INDICATION
     Dosage: 2.5 OT, UNK
     Route: 042
     Dates: start: 20180416, end: 20180416
  70. QUETIAPINE FUMARATE. [Concomitant]
     Active Substance: QUETIAPINE FUMARATE
     Indication: PROPHYLAXIS
     Dosage: 25 OT, UNK
     Route: 042
     Dates: start: 20180416, end: 20180416
  71. QUETIAPINE FUMARATE. [Concomitant]
     Active Substance: QUETIAPINE FUMARATE
     Dosage: 25 OT, UNK
     Route: 042
     Dates: start: 20180417, end: 20180429
  72. AMLODIPINE BESYLATE. [Concomitant]
     Active Substance: AMLODIPINE BESYLATE
     Dosage: 200 OT, UNK
     Route: 048
     Dates: start: 20180517, end: 20180517
  73. BISACODYL. [Concomitant]
     Active Substance: BISACODYL
     Dosage: 20 OT, UNK
     Route: 054
     Dates: start: 20180510, end: 20180517
  74. CALCITONIN, SALMON [Concomitant]
     Active Substance: CALCITONIN SALMON
     Dosage: 700 OT, UNK
     Route: 058
     Dates: start: 20180426, end: 20180426
  75. CALCITONIN, SALMON [Concomitant]
     Active Substance: CALCITONIN SALMON
     Dosage: 700 OT, UNK
     Route: 058
     Dates: start: 20180427, end: 20180427
  76. CORTISONE ACETATE. [Concomitant]
     Active Substance: CORTISONE ACETATE
     Indication: PROPHYLAXIS
     Dosage: 25 OT, UNK
     Route: 048
     Dates: start: 20180508, end: 20180517
  77. AMIODARON [Concomitant]
     Active Substance: AMIODARONE
     Dosage: 200 OT
     Route: 048
     Dates: start: 20180508, end: 20180516
  78. CALCIUM POLYSTYRENE SULFONATE [Concomitant]
     Active Substance: CALCIUM POLYSTYRENE SULFONATE
     Indication: PROPHYLAXIS
     Dosage: 15 OT
     Route: 048
     Dates: start: 20180517, end: 20180517

REACTIONS (4)
  - Respiratory failure [Not Recovered/Not Resolved]
  - Pneumonia [Not Recovered/Not Resolved]
  - Aspartate aminotransferase increased [Recovered/Resolved]
  - Alanine aminotransferase increased [Recovered/Resolved]

NARRATIVE: CASE EVENT DATE: 20180416
